FAERS Safety Report 5849869-4 (Version None)
Quarter: 2008Q3

REPORT INFORMATION
  Report Type: 
  Country: None (occurrence: None)
  Receive Date: 20080819
  Receipt Date: 20080808
  Transmission Date: 20090109
  Serious: Yes (Other)
  Sender: FDA-Public Use
  Company Number: BR-JNJFOC-20080707380

PATIENT
  Age: 6 Year
  Sex: Female

DRUGS (5)
  1. REMICADE [Suspect]
     Route: 042
  2. REMICADE [Suspect]
     Dosage: SECOND INFUSION
     Route: 042
  3. REMICADE [Suspect]
     Indication: CROHN'S DISEASE
     Dosage: FIRST INFUSION GIVEN ON AN UNKNOWN DATE.
     Route: 042
  4. DIPHENHYDRAMINE HCL [Concomitant]
     Indication: PREMEDICATION
     Dosage: DOSAGE NOT PROVIDED
  5. ACETAMINOPHEN [Concomitant]
     Indication: PREMEDICATION
     Dosage: DOSAGE NOT PROVIDED.

REACTIONS (10)
  - ANGIOEDEMA [None]
  - CATHETER RELATED COMPLICATION [None]
  - CYANOSIS [None]
  - DYSPNOEA [None]
  - HEADACHE [None]
  - HYPERSENSITIVITY [None]
  - HYPERTHERMIA [None]
  - INFUSION RELATED REACTION [None]
  - TREMOR [None]
  - VOMITING [None]
